FAERS Safety Report 5568021-3 (Version None)
Quarter: 2007Q4

REPORT INFORMATION
  Report Type: 
  Country: None (occurrence: None)
  Receive Date: 20071220
  Receipt Date: 20071217
  Transmission Date: 20080405
  Serious: Yes (Hospitalization, Other)
  Sender: FDA-Public Use
  Company Number: US-JNJFOC-20071204748

PATIENT
  Sex: Female

DRUGS (1)
  1. INVEGA [Suspect]
     Indication: SCHIZOPHRENIA

REACTIONS (3)
  - HEPATIC FUNCTION ABNORMAL [None]
  - PYREXIA [None]
  - RENAL IMPAIRMENT [None]
